FAERS Safety Report 6607024-4 (Version None)
Quarter: 2010Q1

REPORT INFORMATION
  Report Type: 
  Country: None (occurrence: None)
  Receive Date: 20100226
  Receipt Date: 20100218
  Transmission Date: 20100710
  Serious: Yes (Hospitalization)
  Sender: FDA-Public Use
  Company Number: US-AMGEN-QUU393740

PATIENT
  Age: 72 Year
  Sex: Female

DRUGS (9)
  1. ARANESP [Suspect]
     Indication: RENAL FAILURE CHRONIC
  2. ARANESP [Suspect]
  3. FOSAMAX [Concomitant]
  4. UNSPECIFIED ANTIHYPERTENSIVE AGENT [Concomitant]
  5. NITROGLYCERIN [Concomitant]
  6. VITAMINS [Concomitant]
  7. SINGULAIR [Concomitant]
  8. STOOL SOFTENER [Concomitant]
  9. VITAMIN B-12 [Concomitant]

REACTIONS (2)
  - HAEMOGLOBIN INCREASED [None]
  - PULMONARY EMBOLISM [None]
